FAERS Safety Report 9875828 (Version 2)
Quarter: 2014Q1

REPORT INFORMATION
  Report Type: Other
  Country: US (occurrence: US)
  Receive Date: 20140206
  Receipt Date: 20140206
  Transmission Date: 20141002
  Serious: No
  Sender: FDA-Public Use
  Company Number: US-ACORDA-ACO_35860_2013

PATIENT
  Age: 57 Year
  Sex: Female
  Weight: 87.98 kg

DRUGS (7)
  1. AMPYRA [Suspect]
     Indication: MULTIPLE SCLEROSIS
     Dosage: 10 MG, BID
     Route: 048
     Dates: start: 20111001
  2. TYSABRI [Concomitant]
     Indication: MULTIPLE SCLEROSIS
     Dosage: 300 MG, MONTHLY
     Route: 042
  3. BACLOFEN [Concomitant]
     Indication: MUSCLE SPASTICITY
     Dosage: 10 MG, BID
     Route: 048
     Dates: start: 201209, end: 201306
  4. CYMBALTA [Concomitant]
     Indication: PAIN
     Dosage: 60 MG, QD
     Route: 048
     Dates: start: 201212, end: 201306
  5. GABAPENTIN [Concomitant]
     Indication: NEURALGIA
     Dosage: 100 MG, TID
     Route: 048
     Dates: start: 201206
  6. HYDROMORPHONE HCL [Concomitant]
     Indication: PAIN
     Dosage: 4 MG, Q 4-6 HOURS
     Route: 048
     Dates: start: 201303, end: 201306
  7. PROVIGIL [Concomitant]
     Indication: FATIGUE
     Dosage: 200 MG, BID
     Route: 048
     Dates: start: 201212, end: 201306

REACTIONS (3)
  - Fatigue [Not Recovered/Not Resolved]
  - Insomnia [Recovering/Resolving]
  - Drug ineffective [Unknown]
